FAERS Safety Report 5957985-1 (Version None)
Quarter: 2008Q4

REPORT INFORMATION
  Report Type: 
  Country: None (occurrence: None)
  Receive Date: 20081119
  Receipt Date: 20081112
  Transmission Date: 20090506
  Serious: Yes (Disabling)
  Sender: FDA-Public Use
  Company Number: BR-JNJFOC-20081102618

PATIENT
  Sex: Male
  Weight: 81 kg

DRUGS (2)
  1. REMICADE [Suspect]
     Route: 042
  2. REMICADE [Suspect]
     Indication: CROHN'S DISEASE
     Route: 042

REACTIONS (6)
  - DYSPNOEA [None]
  - HYPERAEMIA [None]
  - HYPERTENSION [None]
  - INFUSION RELATED REACTION [None]
  - OCULAR HYPERAEMIA [None]
  - VOMITING [None]
